FAERS Safety Report 5725847-0 (Version None)
Quarter: 2008Q2

REPORT INFORMATION
  Report Type: 
  Country: None (occurrence: None)
  Receive Date: 20080429
  Receipt Date: 20080418
  Transmission Date: 20081010
  Serious: Yes (Hospitalization)
  Sender: FDA-Public Use
  Company Number: 2008AP000997

PATIENT
  Age: 57 Year
  Sex: Male
  Weight: 85.7298 kg

DRUGS (4)
  1. IMIQUIMOD [Suspect]
     Indication: HYPERTENSION
     Dosage: 250 MG;BIW;TOP
     Route: 061
     Dates: start: 20080401
  2. LISINOPRIL [Suspect]
     Indication: HYPERTENSION
     Dosage: 10 MG
     Dates: start: 20080413, end: 20080413
  3. VITAMIN CAP [Concomitant]
  4. MAGNESIUM [Concomitant]

REACTIONS (3)
  - DEHYDRATION [None]
  - HYPERSENSITIVITY [None]
  - HYPOTENSION [None]
